FAERS Safety Report 6557687-7 (Version None)
Quarter: 2010Q1

REPORT INFORMATION
  Report Type: 
  Country: None (occurrence: None)
  Receive Date: 20100127
  Receipt Date: 20090908
  Transmission Date: 20100710
  Serious: No
  Sender: FDA-Public Use
  Company Number: 2009-00581

PATIENT
  Age: 59 Year
  Sex: Female
  Weight: 124.7392 kg

DRUGS (7)
  1. ZICAM COLD REMEDY ORAL MIST [Suspect]
     Dosage: BID/3-4 DAYS; SEPT OR OCT 2008, 3-4 DAYS
  2. TRILEPTAL [Concomitant]
  3. PHENYTOIN [Concomitant]
  4. PINDOLOL [Concomitant]
  5. MIDODRINE HYDROCHLORIDE [Concomitant]
  6. VITAMIN C [Concomitant]
  7. CENTRUM MULTIVITAMIN/MULTIMINERAL [Concomitant]

REACTIONS (2)
  - AGEUSIA [None]
  - ANOSMIA [None]
